FAERS Safety Report 8093100-9 (Version None)
Quarter: 2012Q1

REPORT INFORMATION
  Report Type: 
  Country: None (occurrence: None)
  Receive Date: 20120128
  Receipt Date: 20110912
  Transmission Date: 20120608
  Serious: Yes (Hospitalization)
  Sender: FDA-Public Use
  Company Number: US-ABBOTT-11P-163-0839642-00

PATIENT
  Sex: Male

DRUGS (5)
  1. MESALAMINE [Concomitant]
     Indication: CROHN'S DISEASE
     Route: 054
  2. HUMIRA [Suspect]
     Dosage: ONCE WEEKLY
     Dates: start: 20110625
  3. PROTONIX [Concomitant]
     Dosage: 40 MG ONCE DAILY
  4. LIALDA [Concomitant]
     Indication: CROHN'S DISEASE
  5. HUMIRA [Suspect]
     Indication: CROHN'S DISEASE
     Dates: start: 20110415

REACTIONS (8)
  - FAECAL INCONTINENCE [None]
  - FLATULENCE [None]
  - MALAISE [None]
  - RASH PRURITIC [None]
  - CROHN'S DISEASE [None]
  - CLOSTRIDIAL INFECTION [None]
  - RASH [None]
  - DIARRHOEA HAEMORRHAGIC [None]
